FAERS Safety Report 14243813 (Version 1)
Quarter: 2017Q4

REPORT INFORMATION
  Report Type: Spontaneous
  Country: CN (occurrence: CN)
  Receive Date: 20171201
  Receipt Date: 20171201
  Transmission Date: 20180321
  Serious: Yes (Hospitalization)
  Sender: FDA-Public Use
  Company Number: CN-BAYER-2017-227861

PATIENT
  Age: 72 Year
  Sex: Male

DRUGS (4)
  1. REPAGLINIDE. [Concomitant]
     Active Substance: REPAGLINIDE
     Dosage: 1 MG, OM
  2. NOVONORM [Concomitant]
     Active Substance: REPAGLINIDE
     Dosage: 2 MG, QD
  3. GLUCOBAY [Suspect]
     Active Substance: ACARBOSE
     Dosage: 50 MG, TID
  4. INSULIN GLARGINE [Concomitant]
     Active Substance: INSULIN GLARGINE
     Indication: BLOOD GLUCOSE ABNORMAL
     Dosage: 14 IU, QD
     Route: 058

REACTIONS (5)
  - Gastrointestinal sounds abnormal [Recovered/Resolved]
  - Abdominal tenderness [Recovered/Resolved]
  - Haematochezia [None]
  - Pneumatosis intestinalis [Recovered/Resolved]
  - Abdominal pain [None]
